FAERS Safety Report 7013990-8 (Version None)
Quarter: 2010Q3

REPORT INFORMATION
  Report Type: 
  Country: None (occurrence: None)
  Receive Date: 20100926
  Receipt Date: 20100923
  Transmission Date: 20110219
  Serious: Yes (Other)
  Sender: FDA-Public Use
  Company Number: US-BRISTOL-MYERS SQUIBB COMPANY-15301260

PATIENT
  Age: 66 Year
  Sex: Female

DRUGS (2)
  1. TRAZODONE HCL [Suspect]
     Dates: start: 20100826, end: 20100826
  2. CLONAZEPAM [Concomitant]

REACTIONS (2)
  - LIP SWELLING [None]
  - SWOLLEN TONGUE [None]
